FAERS Safety Report 9682634 (Version 2)
Quarter: 2013Q4

REPORT INFORMATION
  Report Type: Spontaneous
  Country: AU (occurrence: AU)
  Receive Date: 20131112
  Receipt Date: 20131226
  Transmission Date: 20140711
  Serious: Yes (Hospitalization)
  Sender: FDA-Public Use
  Company Number: AU-009507513-1311AUS002749

PATIENT
  Age: 41 Year
  Sex: Female

DRUGS (2)
  1. AVANZA [Suspect]
     Dosage: 15 MG DAILY (AT NIGHT)
     Route: 048
     Dates: start: 20131024, end: 201311
  2. SERTRALINE HYDROCHLORIDE [Concomitant]
     Indication: ANXIETY
     Dosage: 100 MG, QD
     Dates: start: 201307, end: 20131130

REACTIONS (5)
  - Blood creatinine increased [Unknown]
  - Diarrhoea [Unknown]
  - Myalgia [Unknown]
  - Vomiting [Unknown]
  - Feeling abnormal [Unknown]
